FAERS Safety Report 7583481-4 (Version None)
Quarter: 2011Q2

REPORT INFORMATION
  Report Type: 
  Country: None (occurrence: None)
  Receive Date: 20110628
  Receipt Date: 20110628
  Transmission Date: 20111010
  Serious: Yes (Hospitalization)
  Sender: FDA-Public Use
  Company Number: None

PATIENT
  Sex: Female
  Weight: 98.9 kg

DRUGS (3)
  1. CARBOPLATIN [Suspect]
     Dosage: 600MG
  2. DOCETAXEL [Suspect]
     Dosage: 150MG
  3. TRASTUZUMAB [Suspect]
     Dosage: 400MG
     Dates: end: 20110223

REACTIONS (9)
  - HYPOTENSION [None]
  - NAUSEA [None]
  - DIARRHOEA [None]
  - HAEMOGLOBIN DECREASED [None]
  - ASTHENIA [None]
  - GASTROENTERITIS [None]
  - VOMITING [None]
  - HYPOPHAGIA [None]
  - HYPOVOLAEMIA [None]
